FAERS Safety Report 12238884 (Version 3)
Quarter: 2016Q2

REPORT INFORMATION
  Report Type: Spontaneous
  Country: US (occurrence: US)
  Receive Date: 20160405
  Receipt Date: 20160614
  Transmission Date: 20160815
  Serious: No
  Sender: FDA-Public Use
  Company Number: US-PFIZER INC-2016155316

PATIENT
  Age: 58 Year
  Sex: Male

DRUGS (8)
  1. GABAPENTIN. [Concomitant]
     Active Substance: GABAPENTIN
     Indication: ARTHRITIS
     Dosage: 300 MG, DAILY (3-4 DAILY)
     Dates: start: 2000
  2. FISH OIL [Concomitant]
     Active Substance: FISH OIL
     Dosage: UNK
     Dates: start: 2007
  3. D-3 [Concomitant]
     Active Substance: CHOLECALCIFEROL
     Dosage: UNK
     Dates: start: 2009
  4. MELOXICAM. [Concomitant]
     Active Substance: MELOXICAM
     Indication: ARTHRITIS
     Dosage: 15 MG, 1X/DAY
     Dates: start: 201112
  5. OMEPRAZOLE. [Concomitant]
     Active Substance: OMEPRAZOLE
     Indication: REFLUX LARYNGITIS
  6. DICLOFENAC [Concomitant]
     Active Substance: DICLOFENAC
     Indication: ARTHRITIS
     Dosage: 75 MG, 2X/DAY
     Dates: start: 201112
  7. ATORVASTATIN CALCIUM. [Suspect]
     Active Substance: ATORVASTATIN CALCIUM
     Indication: BLOOD CHOLESTEROL INCREASED
     Dosage: 10 MG, 1X/DAY
     Dates: start: 20111202, end: 20111206
  8. OMEPRAZOLE. [Concomitant]
     Active Substance: OMEPRAZOLE
     Indication: GASTROOESOPHAGEAL REFLUX DISEASE
     Dosage: 40 MG, 2X/DAY (1AM + 1PM)
     Dates: start: 200811

REACTIONS (6)
  - Gastrointestinal disorder [Unknown]
  - Memory impairment [Unknown]
  - Gastric disorder [Recovered/Resolved]
  - Diarrhoea [Recovered/Resolved]
  - Abdominal pain upper [Unknown]
  - Malaise [Unknown]

NARRATIVE: CASE EVENT DATE: 20111202
